FAERS Safety Report 22620949 (Version 1)
Quarter: 2023Q2

REPORT INFORMATION
  Report Type: Other
  Country: US (occurrence: None)
  Receive Date: 20230620
  Receipt Date: 20230620
  Transmission Date: 20230722
  Serious: Yes (Hospitalization)
  Sender: FDA-Public Use
  Company Number: US-ROCHE-3369604

PATIENT
  Age: 51 Year
  Sex: Female

DRUGS (6)
  1. ESBRIET [Suspect]
     Active Substance: PIRFENIDONE
     Indication: Idiopathic interstitial pneumonia
     Dosage: TAKE 1 TABLET 3 TIMES PER DAY
     Route: 048
  2. ESBRIET [Suspect]
     Active Substance: PIRFENIDONE
     Indication: Rhinitis allergic
  3. ESBRIET [Suspect]
     Active Substance: PIRFENIDONE
     Indication: Pharyngitis
  4. ESBRIET [Suspect]
     Active Substance: PIRFENIDONE
     Indication: Polymyositis
  5. ESBRIET [Suspect]
     Active Substance: PIRFENIDONE
     Indication: Lung disorder
  6. ESBRIET [Suspect]
     Active Substance: PIRFENIDONE
     Indication: Food allergy

REACTIONS (1)
  - Scleroderma [Unknown]
